FAERS Safety Report 8470809 (Version 7)
Quarter: 2012Q4

REPORT INFORMATION
  Report Type: 
  Country: CA (occurrence: CA)
  Receive Date: 20120321
  Receipt Date: 20121112
  Transmission Date: 20130627
  Serious: Yes (Hospitalization)
  Sender: FDA-Public Use
  Company Number: CA-ROCHE-1050470

PATIENT
  Age: 39 None
  Sex: Female

DRUGS (8)
  1. XOLAIR [Suspect]
     Indication: ASTHMA
     Route: 058
     Dates: start: 20110126
  2. XOLAIR [Suspect]
     Route: 065
     Dates: start: 20120410
  3. SYMBICORT [Concomitant]
  4. SINGULAIR [Concomitant]
  5. SPIRIVA [Concomitant]
  6. RHINARIS [Concomitant]
  7. ASMANEX [Concomitant]
  8. ALVESCO [Concomitant]

REACTIONS (10)
  - Asthma [Recovering/Resolving]
  - Dyspnoea [Recovered/Resolved]
  - Asthenia [Recovering/Resolving]
  - Upper respiratory tract infection [Recovering/Resolving]
  - Hypertension [Unknown]
  - Lower respiratory tract infection [Recovered/Resolved]
  - Candidiasis [Unknown]
  - Productive cough [Recovered/Resolved]
  - Weight increased [Unknown]
  - Wheezing [Unknown]
